FAERS Safety Report 22198752 (Version 1)
Quarter: 2023Q2

REPORT INFORMATION
  Report Type: Spontaneous
  Country: US (occurrence: US)
  Receive Date: 20230411
  Receipt Date: 20230411
  Transmission Date: 20230721
  Serious: No
  Sender: FDA-Public Use
  Company Number: US-TAKEDA-2023TUS034550

PATIENT
  Sex: Female
  Weight: 59 kg

DRUGS (7)
  1. ROZEREM [Suspect]
     Active Substance: RAMELTEON
     Indication: Sleep disorder
     Dosage: 8 MILLIGRAM, QD
     Route: 048
  2. XANAX [Concomitant]
     Active Substance: ALPRAZOLAM
     Indication: Sleep disorder
     Dosage: UNK
  3. ADVIL PM (DIPHENHYDRAMINE HYDROCHLORIDE\IBUPROFEN) [Concomitant]
     Active Substance: DIPHENHYDRAMINE HYDROCHLORIDE\IBUPROFEN
     Indication: Sleep disorder
     Dosage: UNK
  4. ZZZQUIL NIGHTTIME SLEEP-AID [Concomitant]
     Active Substance: DIPHENHYDRAMINE HYDROCHLORIDE
     Indication: Sleep disorder
     Dosage: UNK
  5. BENADRYL [Concomitant]
     Active Substance: DIPHENHYDRAMINE HYDROCHLORIDE
     Indication: Sleep disorder
     Dosage: 100 MILLIGRAM
  6. CASEIN\DIETARY SUPPLEMENT\THEANINE [Concomitant]
     Active Substance: CASEIN\DIETARY SUPPLEMENT\THEANINE
     Indication: Sleep disorder
     Dosage: UNK
  7. Covid-19 vaccine [Concomitant]
     Dosage: UNK

REACTIONS (3)
  - Drug ineffective [Unknown]
  - Incorrect dose administered [Unknown]
  - Prescription drug used without a prescription [Unknown]
